FAERS Safety Report 9735437 (Version 2)
Quarter: 2015Q3

REPORT INFORMATION
  Report Type: Spontaneous
  Country: US (occurrence: US)
  Receive Date: 20131206
  Receipt Date: 20150804
  Transmission Date: 20151125
  Serious: No
  Sender: FDA-Public Use
  Company Number: US-GILEAD-2009-0022850

PATIENT
  Age: 53 Year
  Sex: Male
  Weight: 105.23 kg

DRUGS (10)
  1. COLCHICINE. [Concomitant]
     Active Substance: COLCHICINE
  2. LISINOPRIL AND HYDROCHLOROTHIAZIDE [Concomitant]
     Active Substance: HYDROCHLOROTHIAZIDE\LISINOPRIL
  3. TRIAMTERENE. [Concomitant]
     Active Substance: TRIAMTERENE
  4. GLUCOPHAGE [Concomitant]
     Active Substance: METFORMIN HYDROCHLORIDE
  5. LETAIRIS [Suspect]
     Active Substance: AMBRISENTAN
     Indication: PULMONARY ARTERIAL HYPERTENSION
     Route: 048
     Dates: start: 20090429
  6. GLIPIZIDE. [Concomitant]
     Active Substance: GLIPIZIDE
  7. LOVASTATIN. [Concomitant]
     Active Substance: LOVASTATIN
  8. PREVACID [Concomitant]
     Active Substance: LANSOPRAZOLE
  9. LORAZEPAM. [Concomitant]
     Active Substance: LORAZEPAM
  10. COUMADIN [Concomitant]
     Active Substance: WARFARIN SODIUM

REACTIONS (5)
  - Panic attack [Unknown]
  - Confusional state [Unknown]
  - Dyspnoea [Unknown]
  - Anxiety [Unknown]
  - Hallucination [Unknown]
